FAERS Safety Report 7457523-0 (Version None)
Quarter: 2011Q2

REPORT INFORMATION
  Report Type: 
  Country: None (occurrence: None)
  Receive Date: 20110504
  Receipt Date: 20110427
  Transmission Date: 20111010
  Serious: Yes (Hospitalization)
  Sender: FDA-Public Use
  Company Number: MY-BRISTOL-MYERS SQUIBB COMPANY-15651953

PATIENT
  Age: 48 Year
  Sex: Male

DRUGS (7)
  1. CEFADROXIL [Suspect]
     Indication: PAIN
  2. PARACETAMOL [Suspect]
     Indication: PAIN
  3. AMOXICILLIN [Suspect]
     Indication: PAIN
  4. PARACETAMOL [Suspect]
     Indication: PYREXIA
  5. AMOXICILLIN [Suspect]
     Indication: PYREXIA
  6. CEFADROXIL [Suspect]
     Indication: PYREXIA
  7. MULTI-VITAMINS [Concomitant]

REACTIONS (1)
  - TOXIC EPIDERMAL NECROLYSIS [None]
